FAERS Safety Report 9517829 (Version 1)
Quarter: 2013Q3

REPORT INFORMATION
  Report Type: Spontaneous
  Country: FR (occurrence: None)
  Receive Date: 20130910
  Receipt Date: 20130910
  Transmission Date: 20140515
  Serious: Yes (Hospitalization)
  Sender: FDA-Public Use
  Company Number: 2013000229

PATIENT
  Age: 76 Year
  Sex: Male

DRUGS (5)
  1. ACEON (PERINDOPRIL ERBUMINE) TABLET [Suspect]
     Indication: HYPERTENSION
     Route: 048
     Dates: end: 20130726
  2. PREVISCAN (FLUINDIONE) [Suspect]
     Indication: ATRIAL FIBRILLATION
     Route: 048
     Dates: start: 20130702, end: 20130729
  3. HEMIGOXINE (DIGOXIN) [Concomitant]
  4. ATENOLOL (ATENOLOL) [Concomitant]
  5. LASILIX SPECIAL (FUROSEMIDE) [Concomitant]

REACTIONS (3)
  - Tubulointerstitial nephritis [None]
  - Oedema peripheral [None]
  - Renal failure acute [None]
